FAERS Safety Report 18128847 (Version 3)
Quarter: 2020Q3

REPORT INFORMATION
  Report Type: Spontaneous
  Country: JP (occurrence: JP)
  Receive Date: 20200810
  Receipt Date: 20200918
  Transmission Date: 20201103
  Serious: Yes (Life-Threatening, Hospitalization, Other)
  Sender: FDA-Public Use
  Company Number: JP-ASTRAZENECA-2020SE99956

PATIENT
  Age: 26 Year
  Sex: Female
  Weight: 53 kg

DRUGS (9)
  1. REBAMIPIDE [Concomitant]
     Active Substance: REBAMIPIDE
     Dates: start: 20200526, end: 20200601
  2. BIPRESSO (QUETIAPINE FUMARATE) [Suspect]
     Active Substance: QUETIAPINE FUMARATE
     Indication: BIPOLAR DISORDER
     Route: 048
     Dates: start: 20200324, end: 20200406
  3. LOXONIN [Concomitant]
     Active Substance: LOXOPROFEN SODIUM
     Dates: start: 20200407, end: 20200601
  4. GASMOTIN [Concomitant]
     Active Substance: MOSAPRIDE CITRATE
     Dates: start: 20200526, end: 20200601
  5. BIPRESSO (QUETIAPINE FUMARATE) [Suspect]
     Active Substance: QUETIAPINE FUMARATE
     Indication: BIPOLAR DISORDER
     Route: 048
     Dates: start: 20200407, end: 20200601
  6. YAZ [Concomitant]
     Active Substance: DROSPIRENONE\ETHINYL ESTRADIOL
     Route: 048
     Dates: start: 202004, end: 20200503
  7. FREWELL [Suspect]
     Active Substance: ETHINYL ESTRADIOL\NORETHINDRONE
     Indication: PREMENSTRUAL SYNDROME
     Route: 048
     Dates: start: 20200524
  8. CONTRACEPTIVE PILL [Concomitant]
     Route: 048
     Dates: start: 20200526
  9. NAUZELIN [Concomitant]
     Active Substance: DOMPERIDONE
     Dates: start: 20200526, end: 20200601

REACTIONS (2)
  - Pulmonary infarction [Recovered/Resolved]
  - Deep vein thrombosis [Recovered/Resolved]
